FAERS Safety Report 21335226 (Version 2)
Quarter: 2022Q3

REPORT INFORMATION
  Report Type: Report from Study
  Country: US (occurrence: US)
  Receive Date: 20220915
  Receipt Date: 20220927
  Transmission Date: 20221026
  Serious: Yes (Other)
  Sender: FDA-Public Use
  Company Number: US-SUN PHARMACEUTICAL INDUSTRIES LTD-2022R1-353738

PATIENT
  Sex: Female

DRUGS (1)
  1. CLOZAPINE [Suspect]
     Active Substance: CLOZAPINE
     Indication: Schizoaffective disorder
     Dosage: 200 MILLIGRAM AT BEDTIME
     Route: 048

REACTIONS (5)
  - Neutropenia [Unknown]
  - Therapy cessation [Unknown]
  - Weight increased [Unknown]
  - Gastrointestinal disorder [Unknown]
  - Hypersomnia [Unknown]
